FAERS Safety Report 5923976-X (Version None)
Quarter: 2008Q4

REPORT INFORMATION
  Report Type: 
  Country: None (occurrence: None)
  Receive Date: 20081020
  Receipt Date: 20081009
  Transmission Date: 20090506
  Serious: Yes (Hospitalization)
  Sender: FDA-Public Use
  Company Number: JP-WYE-H05301708

PATIENT
  Sex: Female
  Weight: 44 kg

DRUGS (12)
  1. ANCARON [Suspect]
     Indication: VENTRICULAR TACHYCARDIA
     Route: 048
     Dates: end: 20050625
  2. PURSENNID [Concomitant]
     Route: 048
     Dates: start: 20070505, end: 20071026
  3. ZYLORIC [Concomitant]
     Route: 048
     Dates: start: 20050811, end: 20071104
  4. BLOPRESS [Concomitant]
     Route: 048
     Dates: start: 20051102, end: 20071101
  5. TRANDOLAPRIL [Concomitant]
     Indication: CARDIAC FAILURE
     Route: 048
     Dates: end: 20050805
  6. LASIX [Concomitant]
     Indication: CARDIAC FAILURE
     Route: 048
  7. ARTIST [Concomitant]
     Route: 048
     Dates: start: 20050621, end: 20071205
  8. RENIVACE [Concomitant]
     Route: 048
     Dates: start: 20050806, end: 20071101
  9. LIPITOR [Concomitant]
     Indication: HYPERLIPIDAEMIA
     Route: 048
  10. SULBACTAM SODIUM [Concomitant]
     Route: 042
     Dates: start: 20071027, end: 20071029
  11. SOTALOL HCL [Concomitant]
     Dates: start: 20070524, end: 20070906
  12. FERROMIA [Concomitant]
     Route: 048
     Dates: start: 20060822, end: 20071101

REACTIONS (1)
  - INTERSTITIAL LUNG DISEASE [None]
